FAERS Safety Report 9291321 (Version 1)
Quarter: 2013Q2

REPORT INFORMATION
  Report Type: Spontaneous
  Country: IT (occurrence: None)
  Receive Date: 20130513
  Receipt Date: 20130513
  Transmission Date: 20140414
  Serious: Yes (Hospitalization)
  Sender: FDA-Public Use
  Company Number: 1706343

PATIENT
  Age: 78 Year
  Sex: Female
  Weight: 60 kg

DRUGS (3)
  1. (CARBOPLATIN) [Suspect]
     Indication: METASTASES TO LYMPH NODES
     Route: 042
     Dates: start: 20130313, end: 20130502
  2. (ONDANSETRON HCL) [Concomitant]
  3. (DEXAMETASON) [Concomitant]

REACTIONS (5)
  - Feeling hot [None]
  - Vasodilatation [None]
  - Hyperhidrosis [None]
  - Hypotension [None]
  - Altered state of consciousness [None]
